FAERS Safety Report 13342225 (Version 1)
Quarter: 2017Q1

REPORT INFORMATION
  Report Type: Spontaneous
  Country: US (occurrence: US)
  Receive Date: 20170316
  Receipt Date: 20170316
  Transmission Date: 20170428
  Serious: Yes (Life-Threatening)
  Sender: FDA-Public Use
  Company Number: None

PATIENT
  Age: 58 Year
  Sex: Male
  Weight: 55.16 kg

DRUGS (1)
  1. HARVONI [Suspect]
     Active Substance: LEDIPASVIR\SOFOSBUVIR
     Indication: HEPATITIS C
     Dosage: 90MG/400MG ONCE A DAY ORAL
     Route: 048
     Dates: start: 20170222

REACTIONS (8)
  - Cough [None]
  - Pain [None]
  - Lung infection [None]
  - Respiratory distress [None]
  - Heart rate increased [None]
  - Crepitations [None]
  - Depressed mood [None]
  - Personality change [None]

NARRATIVE: CASE EVENT DATE: 20170223
